FAERS Safety Report 25077536 (Version 1)
Quarter: 2025Q1

REPORT INFORMATION
  Report Type: Report from Study
  Country: IN (occurrence: IN)
  Receive Date: 20250314
  Receipt Date: 20250314
  Transmission Date: 20250408
  Serious: Yes (Death, Life-Threatening, Hospitalization)
  Sender: ROCHE
  Company Number: IN-ROCHE-10000230973

PATIENT
  Age: 65 Year
  Sex: Female

DRUGS (1)
  1. POLIVY [Suspect]
     Active Substance: POLATUZUMAB VEDOTIN-PIIQ
     Indication: Diffuse large B-cell lymphoma
     Route: 065
     Dates: start: 20250222

REACTIONS (9)
  - Diarrhoea [Recovered/Resolved]
  - Death [Fatal]
  - Vomiting [Unknown]
  - Feeding disorder [Unknown]
  - Mouth ulceration [Unknown]
  - Speech disorder [Unknown]
  - White blood cell count decreased [Unknown]
  - Sepsis [Unknown]
  - Acute kidney injury [Unknown]

NARRATIVE: CASE EVENT DATE: 20250308
